FAERS Safety Report 5261912-2 (Version None)
Quarter: 2007Q1

REPORT INFORMATION
  Report Type: 
  Country: None (occurrence: None)
  Receive Date: 20070310
  Receipt Date: 20070228
  Transmission Date: 20070707
  Serious: Yes (Other)
  Sender: FDA-Public Use
  Company Number: 2006UW11182

PATIENT
  Age: 36 Year
  Sex: Female
  Weight: 90.9 kg

DRUGS (7)
  1. SEROQUEL [Suspect]
     Indication: BIPOLAR I DISORDER
     Route: 048
     Dates: start: 20000101
  2. SEROQUEL [Suspect]
     Indication: DEPRESSION
     Route: 048
     Dates: start: 20000101
  3. SEROQUEL [Suspect]
     Indication: POST-TRAUMATIC STRESS DISORDER
     Route: 048
     Dates: start: 20000101
  4. ZYPREXA [Suspect]
     Dates: start: 20020101, end: 20030101
  5. CLOZARIL [Concomitant]
     Dates: start: 20000101
  6. RISPERDAL [Concomitant]
     Dates: start: 20000101
  7. COCAINE [Concomitant]
     Dates: start: 19960101, end: 20000101

REACTIONS (4)
  - DIABETES MELLITUS [None]
  - DIABETIC KETOACIDOSIS [None]
  - MYOCARDIAL INFARCTION [None]
  - OVERWEIGHT [None]
